FAERS Safety Report 5710454-6 (Version None)
Quarter: 2008Q2

REPORT INFORMATION
  Report Type: 
  Country: None (occurrence: None)
  Receive Date: 20080418
  Receipt Date: 20080410
  Transmission Date: 20081010
  Serious: Yes (Death)
  Sender: FDA-Public Use
  Company Number: US-GENENTECH-258425

PATIENT
  Age: 49 Year
  Sex: Female

DRUGS (5)
  1. BEVACIZUMAB [Suspect]
     Indication: GLIOMA
     Dosage: 10 MG/KG, DAYS 1+15
     Route: 042
     Dates: start: 20080107
  2. ENZASTAURIN [Suspect]
     Indication: GLIOMA
     Dosage: 1125 MG, SINGLE
     Route: 048
     Dates: start: 20080107
  3. ENZASTAURIN [Suspect]
     Dosage: 875 MG, QD
     Route: 048
  4. KEPPRA [Concomitant]
     Indication: DRUG USE FOR UNKNOWN INDICATION
  5. EPINEPHRINE [Suspect]

REACTIONS (3)
  - CONVULSION [None]
  - PERICARDIAL EFFUSION [None]
  - PULMONARY EMBOLISM [None]
